FAERS Safety Report 5847730-2 (Version None)
Quarter: 2008Q3

REPORT INFORMATION
  Report Type: 
  Country: None (occurrence: None)
  Receive Date: 20080815
  Receipt Date: 20080815
  Transmission Date: 20090109
  Serious: Yes (Life-Threatening, Hospitalization)
  Sender: FDA-Public Use
  Company Number: None

PATIENT
  Age: 67 Year
  Sex: Male
  Weight: 74.8435 kg

DRUGS (2)
  1. DIGITEK [Suspect]
     Indication: CARDIAC DISORDER
     Dosage: 1 DAILY PER DAY
     Dates: start: 19990101, end: 20080101
  2. DIGITEK [Suspect]
     Indication: MULTIPLE SCLEROSIS
     Dosage: 1 DAILY PER DAY
     Dates: start: 19990101, end: 20080101

REACTIONS (1)
  - TRANSIENT ISCHAEMIC ATTACK [None]
